FAERS Safety Report 9728558 (Version 1)
Quarter: 2013Q4

REPORT INFORMATION
  Report Type: Spontaneous
  Country: US (occurrence: US)
  Receive Date: 20131204
  Receipt Date: 20131204
  Transmission Date: 20140711
  Serious: No
  Sender: FDA-Public Use
  Company Number: US-009507513-1312USA001168

PATIENT
  Sex: Female

DRUGS (2)
  1. SAPHRIS [Suspect]
     Indication: BIPOLAR DISORDER
     Dosage: 20 MG DAILY
     Route: 060
  2. SAPHRIS [Suspect]
     Dosage: 10 MG DAILY
     Route: 060

REACTIONS (3)
  - Oedema mouth [Recovered/Resolved]
  - Speech disorder [Recovered/Resolved]
  - Dystonia [Recovered/Resolved]
